FAERS Safety Report 22238630 (Version 4)
Quarter: 2024Q1

REPORT INFORMATION
  Report Type: Spontaneous
  Country: MX (occurrence: None)
  Receive Date: 20230421
  Receipt Date: 20240313
  Transmission Date: 20240409
  Serious: Yes (Hospitalization, Other)
  Sender: FDA-Public Use
  Company Number: 2023A064876

PATIENT
  Age: 56 Year
  Sex: Female
  Weight: 68 kg

DRUGS (11)
  1. FASLODEX [Suspect]
     Active Substance: FULVESTRANT
     Indication: Ganglioneuroma
     Route: 030
     Dates: start: 202208
  2. TAMOXIFEN [Suspect]
     Active Substance: TAMOXIFEN
     Indication: Breast cancer
     Route: 048
     Dates: start: 2014, end: 201911
  3. LEVOTHYROXINE SODIUM [Concomitant]
     Active Substance: LEVOTHYROXINE SODIUM
     Route: 048
  4. FOLIC ACID [Concomitant]
     Active Substance: FOLIC ACID
     Route: 048
  5. VITAMIN D [Concomitant]
     Active Substance: VITAMIN D NOS
     Dosage: 1 TABLET PO EVERY 24 HOURS,
     Route: 048
  6. CALCIUM [Concomitant]
     Active Substance: CALCIUM
     Dosage: 1 TABLET PO EVERY 24 HOURS,
     Route: 048
  7. ISOFLAVONES [Concomitant]
     Dosage: 1 TABLET PO EVERY 24 HRS,
     Route: 048
  8. GLUTATHIONE [Concomitant]
     Active Substance: GLUTATHIONE
     Dosage: 1 TABLET PO EVERY 24 HOURS,
     Route: 048
  9. MAGNESIUM [Concomitant]
     Active Substance: MAGNESIUM
     Dosage: TABLET PO EVERY 24
     Route: 048
  10. BIOTIN [Concomitant]
     Active Substance: BIOTIN
     Dosage: 1 TABLET PO EVERY 24 HOURS,
     Route: 048
  11. BETA GLUCAN [Concomitant]
     Active Substance: BETA GLUCAN
     Dosage: 1 TABLET PO EVERY 24 HOURS,
     Route: 048

REACTIONS (49)
  - Rash [Unknown]
  - Metastases to nervous system [Unknown]
  - Metastases to lymph nodes [Recovering/Resolving]
  - Hepatic steatosis [Recovering/Resolving]
  - Cholecystitis [Not Recovered/Not Resolved]
  - Nephrolithiasis [Recovering/Resolving]
  - Demyelination [Recovering/Resolving]
  - Lung cyst [Recovering/Resolving]
  - Renal disorder [Recovering/Resolving]
  - Abdominal pain [Recovering/Resolving]
  - Flank pain [Recovering/Resolving]
  - Abdominal discomfort [Recovering/Resolving]
  - Haematoma [Recovering/Resolving]
  - Pruritus [Recovering/Resolving]
  - Injection site nodule [Recovering/Resolving]
  - Hot flush [Not Recovered/Not Resolved]
  - Cholelithiasis [Not Recovered/Not Resolved]
  - Fatigue [Not Recovered/Not Resolved]
  - Rash [Recovered/Resolved]
  - Liver disorder [Recovering/Resolving]
  - Abdominal pain [Recovering/Resolving]
  - Skin atrophy [Unknown]
  - Alopecia [Not Recovered/Not Resolved]
  - COVID-19 [Recovered/Resolved with Sequelae]
  - Pain [Recovering/Resolving]
  - Mental impairment [Recovering/Resolving]
  - Anxiety [Not Recovered/Not Resolved]
  - Brain fog [Recovered/Resolved]
  - Speech disorder developmental [Not Recovered/Not Resolved]
  - Malaise [Not Recovered/Not Resolved]
  - Mental impairment [Not Recovered/Not Resolved]
  - Depression [Not Recovered/Not Resolved]
  - Abdominal discomfort [Recovering/Resolving]
  - Pain in extremity [Not Recovered/Not Resolved]
  - Cough [Recovered/Resolved]
  - Asthma [Recovered/Resolved]
  - Alopecia [Recovering/Resolving]
  - Dermatitis [Recovered/Resolved]
  - Dry skin [Unknown]
  - Onychoclasis [Unknown]
  - Cognitive disorder [Unknown]
  - Skin infection [Unknown]
  - Disturbance in attention [Not Recovered/Not Resolved]
  - Insomnia [Not Recovered/Not Resolved]
  - Gait inability [Not Recovered/Not Resolved]
  - Biliary colic [Not Recovered/Not Resolved]
  - Inappropriate schedule of product administration [Unknown]
  - Application site warmth [Unknown]
  - Burning sensation [Unknown]

NARRATIVE: CASE EVENT DATE: 20090101
